FAERS Safety Report 7353369-2 (Version None)
Quarter: 2011Q1

REPORT INFORMATION
  Report Type: 
  Country: None (occurrence: None)
  Receive Date: 20110315
  Receipt Date: 20101129
  Transmission Date: 20110831
  Serious: Yes (Other)
  Sender: FDA-Public Use
  Company Number: BR-GILEAD-2009-0025318

PATIENT
  Age: 36 Year
  Sex: Male
  Weight: 68 kg

DRUGS (2)
  1. LEVOFLOXACIN [Concomitant]
  2. EMTRICITABINE/TENOFOVIR DISOPROXIL FUMARATE [Suspect]
     Route: 048
     Dates: start: 20090717

REACTIONS (1)
  - TOOTH FRACTURE [None]
